FAERS Safety Report 5159170-2 (Version None)
Quarter: 2006Q4

REPORT INFORMATION
  Report Type: 
  Country: None (occurrence: None)
  Receive Date: 20061114
  Receipt Date: 20061026
  Transmission Date: 20070319
  Serious: Yes (Hospitalization)
  Sender: FDA-Public Use
  Company Number: 008960

PATIENT
  Age: 37 Year
  Sex: Female

DRUGS (1)
  1. WARFARIN SODIUM [Suspect]
     Indication: ANTICOAGULANT THERAPY
     Dosage: 15 MG, QD, ORAL
     Route: 048
     Dates: start: 19910101

REACTIONS (4)
  - DRUG INEFFECTIVE [None]
  - MYOCARDIAL INFARCTION [None]
  - THROMBOSIS [None]
  - TOOTH ABSCESS [None]
